FAERS Safety Report 18926595 (Version 1)
Quarter: 2021Q1

REPORT INFORMATION
  Report Type: Spontaneous
  Country: US (occurrence: US)
  Receive Date: 20210223
  Receipt Date: 20210223
  Transmission Date: 20210420
  Serious: Yes (Hospitalization, Other)
  Sender: FDA-Public Use
  Company Number: US-SA-2021SA060361

PATIENT
  Age: 62 Year
  Sex: Male

DRUGS (5)
  1. FASENRA [Concomitant]
     Active Substance: BENRALIZUMAB
  2. DUPIXENT [Suspect]
     Active Substance: DUPILUMAB
     Dosage: 300 MG, QOW
     Dates: start: 202101
  3. NUCALA [Concomitant]
     Active Substance: MEPOLIZUMAB
  4. PREDNISONE. [Concomitant]
     Active Substance: PREDNISONE
  5. DUPIXENT [Suspect]
     Active Substance: DUPILUMAB
     Indication: ASTHMA
     Dosage: UNK
     Dates: start: 20210104, end: 20210104

REACTIONS (4)
  - Near death experience [Unknown]
  - Debridement [Unknown]
  - Post procedural complication [Unknown]
  - Peripheral artery bypass [Unknown]

NARRATIVE: CASE EVENT DATE: 202101
